FAERS Safety Report 6406500-7 (Version None)
Quarter: 2009Q4

REPORT INFORMATION
  Report Type: 
  Country: None (occurrence: None)
  Receive Date: 20091019
  Receipt Date: 20091015
  Transmission Date: 20100525
  Serious: Yes (Death)
  Sender: FDA-Public Use
  Company Number: US-GENENTECH-292303

PATIENT
  Sex: Female
  Weight: 68.027 kg

DRUGS (4)
  1. HERCEPTIN [Suspect]
     Indication: THERAPEUTIC PROCEDURE
     Dosage: 4 MG/KG, 1/WEEK
     Route: 042
     Dates: start: 20090928
  2. HERCEPTIN [Suspect]
     Dosage: 2 MG/KG, 1/WEEK
     Route: 042
     Dates: start: 20091005
  3. TAXOTERE [Concomitant]
     Indication: THERAPEUTIC PROCEDURE
     Dosage: UNK
     Dates: start: 20090928
  4. CARBOPLATIN [Concomitant]
     Indication: THERAPEUTIC PROCEDURE
     Dosage: UNK
     Dates: start: 20090928

REACTIONS (3)
  - CAECITIS [None]
  - NEUTROPENIA [None]
  - PYREXIA [None]
